FAERS Safety Report 6867963-6 (Version None)
Quarter: 2010Q3

REPORT INFORMATION
  Report Type: 
  Country: None (occurrence: None)
  Receive Date: 20100722
  Receipt Date: 20100713
  Transmission Date: 20110219
  Serious: Yes (Other)
  Sender: FDA-Public Use
  Company Number: US-SANOFI-AVENTIS-2010SA041844

PATIENT
  Sex: Female

DRUGS (6)
  1. MULTAQ [Suspect]
     Route: 048
     Dates: start: 20100201
  2. REMICADE [Concomitant]
     Dosage: EVERY EIGHT WEEKS
  3. METHOTREXATE [Concomitant]
  4. VERAPAMIL [Concomitant]
     Route: 048
  5. SIMVASTATIN [Concomitant]
  6. VITAMINS [Concomitant]

REACTIONS (2)
  - BLOOD CREATININE INCREASED [None]
  - RENAL IMPAIRMENT [None]
